FAERS Safety Report 9518447 (Version 1)
Quarter: 2013Q1

REPORT INFORMATION
  Report Type: Spontaneous
  Country: US (occurrence: None)
  Receive Date: 20130305
  Receipt Date: 20130305
  Transmission Date: 20140127
  Serious: Yes (Other)
  Sender: FDA-Public Use
  Company Number: 163-21880-12081052

PATIENT
  Sex: Female

DRUGS (4)
  1. REVLIMID(LENALIDOMIDE) [Suspect]
     Indication: PLASMA CELL MYELOMA
     Dosage: 15 MG, 21 IN 21 D, PO
     Route: 048
     Dates: start: 20120416, end: 2012
  2. SPIRIVA(TIOTROPIUM BROMIDE) (INHALANT) [Concomitant]
  3. DIOVAN(VALSARTAN) [Concomitant]
  4. ASPIRIN(ACETYLSALCYLIC ACID) [Concomitant]

REACTIONS (1)
  - Malaise [None]
